FAERS Safety Report 9885858 (Version 1)
Quarter: 2014Q1

REPORT INFORMATION
  Report Type: Spontaneous
  Country: US (occurrence: None)
  Receive Date: 20140207
  Receipt Date: 20140207
  Transmission Date: 20141002
  Serious: Yes (Hospitalization)
  Sender: FDA-Public Use
  Company Number: None

PATIENT
  Age: 71 Year
  Sex: Male
  Weight: 85.73 kg

DRUGS (8)
  1. DECITABINE [Suspect]
     Indication: ACUTE MYELOID LEUKAEMIA
     Dosage: 20 MG/M2; QX10;28DAYCYCLE
     Dates: start: 20131201
  2. ATENOLOL [Suspect]
  3. ALLOPURINOL [Concomitant]
  4. ISOSORBIDE [Concomitant]
  5. LISINOPRIL [Concomitant]
  6. OXYCODONE [Concomitant]
  7. VALTREX [Concomitant]
  8. VITAMIN D [Concomitant]

REACTIONS (2)
  - Febrile neutropenia [None]
  - Cough [None]
